FAERS Safety Report 10160874 (Version 1)
Quarter: 2014Q2

REPORT INFORMATION
  Report Type: Spontaneous
  Country: US (occurrence: US)
  Receive Date: 20140508
  Receipt Date: 20140508
  Transmission Date: 20141212
  Serious: Yes (Death, Hospitalization)
  Sender: FDA-Public Use
  Company Number: PHHY2014US053847

PATIENT
  Age: 57 Year
  Sex: Male

DRUGS (2)
  1. HYDROCHLOROTHIAZIDE [Suspect]
  2. MOEXIPRIL [Suspect]

REACTIONS (10)
  - Neutropenic colitis [Fatal]
  - Abdominal pain [Fatal]
  - Nausea [Fatal]
  - Vomiting [Fatal]
  - Hyperhidrosis [Fatal]
  - Abdominal distension [Fatal]
  - Abdominal rigidity [Fatal]
  - Neutropenia [Fatal]
  - Multi-organ failure [Unknown]
  - Septic shock [Unknown]
